FAERS Safety Report 4393260-7 (Version None)
Quarter: 2004Q3

REPORT INFORMATION
  Report Type: 
  Country: None (occurrence: None)
  Receive Date: 20040701
  Receipt Date: 20040611
  Transmission Date: 20050211
  Serious: Yes (Other)
  Sender: FDA-Public Use
  Company Number: EWC040639626

PATIENT
  Age: 10 Year
  Weight: 35 kg

DRUGS (2)
  1. ATOMOXETINE HYDROCHLORIDE [Suspect]
     Indication: ATTENTION DEFICIT/HYPERACTIVITY DISORDER
     Dosage: 45 MG DAY
     Dates: start: 20040402, end: 20040507
  2. ATOMOXETINE HYDROCHLORIDE [Suspect]
     Indication: OPPOSITIONAL DEFIANT DISORDER
     Dosage: 45 MG DAY
     Dates: start: 20040402, end: 20040507

REACTIONS (6)
  - ANOREXIA [None]
  - APATHY [None]
  - DEPRESSION [None]
  - FATIGUE [None]
  - HYPERSOMNIA [None]
  - WEIGHT DECREASED [None]
